FAERS Safety Report 7009273-2 (Version None)
Quarter: 2010Q3

REPORT INFORMATION
  Report Type: 
  Country: None (occurrence: None)
  Receive Date: 20100923
  Receipt Date: 20100921
  Transmission Date: 20110219
  Serious: Yes (Hospitalization)
  Sender: FDA-Public Use
  Company Number: US-BRISTOL-MYERS SQUIBB COMPANY-14910707

PATIENT
  Age: 69 Year
  Sex: Male

DRUGS (9)
  1. CETUXIMAB [Suspect]
     Indication: METASTATIC GASTRIC CANCER
     Dosage: INTERRUPTED ON (19NOV09)
     Route: 042
     Dates: start: 20090619, end: 20091129
  2. XELODA [Suspect]
     Indication: METASTATIC GASTRIC CANCER
     Dosage: INTERRUPTED ON 25NOV09
     Route: 048
     Dates: start: 20090619, end: 20091112
  3. OXALIPLATIN [Suspect]
     Indication: METASTATIC GASTRIC CANCER
     Dosage: 19-19JUN2009 11-11NOV2009 EVERY CYCLE
     Route: 041
     Dates: start: 20090619, end: 20091111
  4. REGLAN [Concomitant]
  5. LOPERAMIDE [Concomitant]
  6. ZOFRAN [Concomitant]
  7. COMPAZINE [Concomitant]
  8. ENALAPRIL [Concomitant]
  9. NORVASC [Concomitant]

REACTIONS (3)
  - DIZZINESS [None]
  - HEADACHE [None]
  - VISION BLURRED [None]
